FAERS Safety Report 18762563 (Version 1)
Quarter: 2021Q1

REPORT INFORMATION
  Report Type: Spontaneous
  Country: KR (occurrence: KR)
  Receive Date: 20210120
  Receipt Date: 20210120
  Transmission Date: 20210419
  Serious: No
  Sender: FDA-Public Use
  Company Number: KR-ALKEM LABORATORIES LIMITED-KR-ALKEM-2020-08515

PATIENT
  Age: 30 Year
  Sex: Female

DRUGS (1)
  1. TRIAMCINOLONE ACETONIDE. [Suspect]
     Active Substance: TRIAMCINOLONE ACETONIDE
     Indication: NODULE
     Dosage: 40 MG/ML
     Route: 026

REACTIONS (2)
  - Skin atrophy [Recovering/Resolving]
  - Injection site discolouration [Recovering/Resolving]
